FAERS Safety Report 16154899 (Version 2)
Quarter: 2019Q2

REPORT INFORMATION
  Report Type: Spontaneous
  Country: JO (occurrence: JO)
  Receive Date: 20190403
  Receipt Date: 20190411
  Transmission Date: 20190711
  Serious: Yes (Death, Hospitalization, Other)
  Sender: FDA-Public Use
  Company Number: JO-NOVOPROD-654004

PATIENT
  Age: 70 Year
  Sex: Female

DRUGS (2)
  1. RYZODEG 70/30 [Suspect]
     Active Substance: INSULIN ASPART\INSULIN DEGLUDEC
     Dosage: 50 IU, TID
     Route: 058
  2. RYZODEG 70/30 [Suspect]
     Active Substance: INSULIN ASPART\INSULIN DEGLUDEC
     Indication: TYPE 2 DIABETES MELLITUS
     Dosage: 50 IU, BID
     Route: 058
     Dates: start: 20190220

REACTIONS (4)
  - Intentional product misuse [Unknown]
  - Death [Fatal]
  - Coma [Unknown]
  - Pulmonary oedema [Unknown]
